FAERS Safety Report 13751985 (Version 2)
Quarter: 2017Q3

REPORT INFORMATION
  Report Type: Report from Study
  Country: US (occurrence: US)
  Receive Date: 20170713
  Receipt Date: 20170725
  Transmission Date: 20171127
  Serious: No
  Sender: FDA-Public Use
  Company Number: US-ASTRAZENECA-2016SE17012

PATIENT
  Age: 679 Month
  Sex: Female
  Weight: 88 kg

DRUGS (10)
  1. OXYCODONE [Concomitant]
     Active Substance: OXYCODONE
     Indication: BREAKTHROUGH PAIN
     Dosage: AS REQUIRED
     Route: 048
  2. TAGRISSO [Suspect]
     Active Substance: OSIMERTINIB
     Indication: LUNG ADENOCARCINOMA STAGE IV
     Route: 048
     Dates: start: 201601
  3. NAPROXEN. [Concomitant]
     Active Substance: NAPROXEN
     Indication: INFLAMMATION
     Route: 048
  4. EFFEXOR VENLAFAXINE [Concomitant]
     Indication: DEPRESSION
     Route: 048
  5. LACTIC ACID. [Concomitant]
     Active Substance: LACTIC ACID
     Indication: DRY SKIN
     Dosage: DAILY
     Route: 061
  6. OXYCONTIN [Concomitant]
     Active Substance: OXYCODONE HYDROCHLORIDE
     Indication: BACK PAIN
     Route: 048
  7. LIDOCAINE PRILOCAINE [Concomitant]
     Active Substance: LIDOCAINE\PRILOCAINE
     Indication: PROPHYLAXIS
     Dosage: AS REQUIRED
  8. TAGRISSO [Suspect]
     Active Substance: OSIMERTINIB
     Indication: LUNG NEOPLASM MALIGNANT
     Route: 048
     Dates: start: 201601
  9. NAPROXEN. [Concomitant]
     Active Substance: NAPROXEN
     Indication: BACK PAIN
     Route: 048
  10. TYLENOL EXTRA STRENGTH [Concomitant]
     Active Substance: ACETAMINOPHEN
     Indication: BACK PAIN
     Dosage: 500.0MG AS REQUIRED
     Route: 048

REACTIONS (25)
  - Swelling [Unknown]
  - Spinal column stenosis [Unknown]
  - Somnolence [Not Recovered/Not Resolved]
  - Mean cell haemoglobin decreased [Unknown]
  - Dyspepsia [Unknown]
  - Asthma [Unknown]
  - Scoliosis [Unknown]
  - Umbilical hernia [Not Recovered/Not Resolved]
  - Nail disorder [Not Recovered/Not Resolved]
  - Urinary tract infection [Recovered/Resolved]
  - Cataract [Not Recovered/Not Resolved]
  - Abscess limb [Recovering/Resolving]
  - Localised infection [Recovering/Resolving]
  - Dry skin [Unknown]
  - Osteoarthritis [Unknown]
  - Back pain [Not Recovered/Not Resolved]
  - Dental discomfort [Not Recovered/Not Resolved]
  - Lymphocyte count [Unknown]
  - Intervertebral disc protrusion [Unknown]
  - Nail ridging [Not Recovered/Not Resolved]
  - Platelet count decreased [Not Recovered/Not Resolved]
  - Neuropathy peripheral [Not Recovered/Not Resolved]
  - Bursitis [Unknown]
  - Skin exfoliation [Not Recovered/Not Resolved]
  - Therapeutic response unexpected [Unknown]

NARRATIVE: CASE EVENT DATE: 201602
